FAERS Safety Report 7783625-5 (Version None)
Quarter: 2011Q3

REPORT INFORMATION
  Report Type: 
  Country: None (occurrence: None)
  Receive Date: 20110928
  Receipt Date: 20110624
  Transmission Date: 20111222
  Serious: No
  Sender: FDA-Public Use
  Company Number: US-MYLANLABS-2011S1013514

PATIENT
  Sex: Male

DRUGS (7)
  1. ALLOPURINOL [Concomitant]
  2. HYDROCHLOROTHIAZIDE [Concomitant]
  3. NITRGLYCERIN TRANSDERMAL SYSTEM [Suspect]
     Indication: BLOOD PRESSURE
     Dosage: Q12 ON, Q 12 OFF
     Route: 062
     Dates: start: 20080101
  4. NITRGLYCERIN TRANSDERMAL SYSTEM [Suspect]
     Indication: ANGINA PECTORIS
     Dosage: Q12 ON, Q 12 OFF
     Route: 062
     Dates: start: 20080101
  5. SIMVASTATIN [Concomitant]
  6. METOPROLOL TARTRATE [Concomitant]
  7. PLAVIX [Concomitant]

REACTIONS (1)
  - APPLICATION SITE PAIN [None]
